FAERS Safety Report 7484039-8 (Version None)
Quarter: 2011Q2

REPORT INFORMATION
  Report Type: 
  Country: None (occurrence: None)
  Receive Date: 20110517
  Receipt Date: 20110512
  Transmission Date: 20111010
  Serious: Yes (Life-Threatening)
  Sender: FDA-Public Use
  Company Number: JP-PFIZER INC-2011086770

PATIENT
  Age: 64 Year
  Sex: Male
  Weight: 61 kg

DRUGS (5)
  1. SUNITINIB MALATE [Suspect]
     Indication: RENAL CELL CARCINOMA
     Dosage: 37.5 MG, 1X/DAY
     Route: 048
     Dates: start: 20090115, end: 20110419
  2. LOPERAMIDE HCL [Concomitant]
     Dosage: 1 MG, 1X/DAY
     Route: 048
     Dates: end: 20110419
  3. LAC B [Concomitant]
     Dosage: 1 G, 3X/DAY
     Route: 048
     Dates: end: 20110419
  4. ALLOID [Concomitant]
     Dosage: 30 ML, 3X/DAY
     Route: 048
     Dates: end: 20110419
  5. CANDESARTAN CILEXETIL [Concomitant]
     Dosage: 4 MG, 1X/DAY
     Route: 048
     Dates: start: 20110324, end: 20110419

REACTIONS (1)
  - AORTIC DISSECTION [None]
